FAERS Safety Report 23078526 (Version 1)
Quarter: 2023Q4

REPORT INFORMATION
  Report Type: Spontaneous
  Country: US (occurrence: None)
  Receive Date: 20231016
  Receipt Date: 20231016
  Transmission Date: 20240110
  Serious: No
  Sender: FDA-Public Use
  Company Number: None

PATIENT
  Sex: Female

DRUGS (41)
  1. COSENTYX [Suspect]
     Active Substance: SECUKINUMAB
     Indication: Psoriatic arthropathy
     Route: 058
     Dates: start: 20220119
  2. ALPRAZOLAM [Concomitant]
  3. ALTRENO LOT [Concomitant]
  4. ACETAMINOPHEN\CODEINE PHOSPHATE [Concomitant]
     Active Substance: ACETAMINOPHEN\CODEINE PHOSPHATE
  5. BACLOFEN [Concomitant]
  6. BUPROPN HCL TAB [Concomitant]
  7. BUSPIRONE TAB [Concomitant]
  8. BUT/APAP/CAF CAP [Concomitant]
  9. CITALOPRAM [Concomitant]
     Active Substance: CITALOPRAM HYDROBROMIDE
  10. CITALOPRAM [Concomitant]
     Active Substance: CITALOPRAM HYDROBROMIDE
  11. CLOBETASOL SOL [Concomitant]
  12. CLONIDINE [Concomitant]
     Active Substance: CLONIDINE
  13. CLONIDINE [Concomitant]
     Active Substance: CLONIDINE
  14. CYCLOBENZAPRINE [Concomitant]
     Active Substance: CYCLOBENZAPRINE
  15. DIAZEPAM [Concomitant]
     Active Substance: DIAZEPAM
  16. DULOXETINE [Concomitant]
  17. ESCITALOPRAM [Concomitant]
     Active Substance: ESCITALOPRAM OXALATE
  18. FINASTERIDE [Concomitant]
     Active Substance: FINASTERIDE
  19. FLUCLVX QUAD INJ [Concomitant]
  20. FOLIC ACID [Concomitant]
     Active Substance: FOLIC ACID
  21. HYDROCORT CRE [Concomitant]
  22. HYDROMORPHONE [Concomitant]
     Active Substance: HYDROMORPHONE
  23. HYDROMORPHONE [Concomitant]
     Active Substance: HYDROMORPHONE
  24. HYDROXYZINE HYDROCHLORIDE [Concomitant]
     Active Substance: HYDROXYZINE HYDROCHLORIDE
  25. LISINOPRIL [Concomitant]
     Active Substance: LISINOPRIL
  26. METHOTREXATE [Concomitant]
     Active Substance: METHOTREXATE
  27. MINOXIDIL [Concomitant]
     Active Substance: MINOXIDIL
  28. MIRTAZAPINE [Concomitant]
     Active Substance: MIRTAZAPINE
  29. ONDANSETRON [Concomitant]
     Active Substance: ONDANSETRON
  30. ONDANSETRON [Concomitant]
  31. OXYCODONE [Concomitant]
     Active Substance: OXYCODONE
  32. OXYCODONE [Concomitant]
     Active Substance: OXYCODONE
  33. OXYCODONE [Concomitant]
     Active Substance: OXYCODONE
  34. PFIZER BIVAL INJ BA4/BA5 [Concomitant]
  35. PIMECROLIMUS CRE [Concomitant]
  36. PREDNISONE [Concomitant]
     Active Substance: PREDNISONE
  37. RESTASIS EMU [Concomitant]
  38. TAZAROTENE CRE [Concomitant]
  39. TRETINOIN CRE [Concomitant]
  40. TRIAMCINOLON CRE [Concomitant]
  41. ZALEPLON CAP [Concomitant]

REACTIONS (9)
  - Alopecia [None]
  - Alopecia [None]
  - Arthralgia [None]
  - Rash [None]
  - Discomfort [None]
  - Infection [None]
  - Pain [None]
  - Product dose omission in error [None]
  - Drug ineffective [None]
